FAERS Safety Report 4334205-5 (Version None)
Quarter: 2004Q2

REPORT INFORMATION
  Report Type: 
  Country: None (occurrence: None)
  Receive Date: 20040405
  Receipt Date: 20040322
  Transmission Date: 20050107
  Serious: Yes (Hospitalization)
  Sender: FDA-Public Use
  Company Number: CERZ-10541

PATIENT
  Age: 26 Year
  Sex: Female
  Weight: 77 kg

DRUGS (3)
  1. CEREZYME [Suspect]
     Indication: GAUCHER'S DISEASE
     Dosage: 4600 UNITS Q2WKS IV
     Route: 042
     Dates: start: 20040201
  2. CEREZYME [Suspect]
     Indication: GAUCHER'S DISEASE
     Dosage: 3400 UNITS Q2WKS IV
     Route: 042
     Dates: start: 19970501, end: 20040201
  3. MS CONTIN [Concomitant]

REACTIONS (6)
  - AMNESIA [None]
  - BACK PAIN [None]
  - CATHETER SEPSIS [None]
  - HYPOTENSION [None]
  - PHARYNGOLARYNGEAL PAIN [None]
  - RESPIRATORY DISTRESS [None]
